FAERS Safety Report 10213879 (Version 1)
Quarter: 2014Q2

REPORT INFORMATION
  Report Type: Spontaneous
  Country: IT (occurrence: None)
  Receive Date: 20140529
  Receipt Date: 20140529
  Transmission Date: 20141212
  Serious: Yes (Hospitalization)
  Sender: FDA-Public Use
  Company Number: 2014AP003092

PATIENT
  Age: 46 Year
  Sex: Female

DRUGS (3)
  1. CLARITHROMYCIN (CLARITHYROMYCIN) TABLET [Suspect]
     Indication: PYREXIA
     Dates: start: 20140507, end: 20140508
  2. FOSTER /06206901/ (BECKOMETASONE DIPROPIONATE, FORMOTEROL FUMARATE) [Concomitant]
  3. OMEPRAZOLE (OMEPRAZOLE) [Concomitant]

REACTIONS (2)
  - Generalised erythema [None]
  - Pruritus generalised [None]
